FAERS Safety Report 18801604 (Version 1)
Quarter: 2021Q1

REPORT INFORMATION
  Report Type: Spontaneous
  Country: US (occurrence: US)
  Receive Date: 20210128
  Receipt Date: 20210128
  Transmission Date: 20210419
  Serious: No
  Sender: FDA-Public Use
  Company Number: US-IGSA-SR10010273

PATIENT
  Sex: Male

DRUGS (2)
  1. PROFILNINE [Suspect]
     Active Substance: FACTOR IX COMPLEX
     Indication: FACTOR II DEFICIENCY
     Dosage: 2000 U, PRN
     Route: 042
     Dates: start: 201811
  2. PROFILNINE [Suspect]
     Active Substance: FACTOR IX COMPLEX
     Indication: PROPHYLAXIS
     Dosage: 2000 U, Q.WK.
     Route: 042
     Dates: start: 201811

REACTIONS (2)
  - Fatigue [Not Recovered/Not Resolved]
  - Therapeutic response decreased [Not Recovered/Not Resolved]
